FAERS Safety Report 12457836 (Version 1)
Quarter: 2016Q2

REPORT INFORMATION
  Report Type: Report from Study
  Country: AR (occurrence: AR)
  Receive Date: 20160611
  Receipt Date: 20160611
  Transmission Date: 20160815
  Serious: Yes (Other)
  Sender: FDA-Public Use
  Company Number: AR-TEVA-665653ISR

PATIENT
  Age: 33 Year
  Sex: Female

DRUGS (3)
  1. KALETRA [Suspect]
     Active Substance: LOPINAVIR\RITONAVIR
     Dosage: 4 DOSAGE FORMS DAILY;
     Route: 048
     Dates: start: 20120209
  2. LAMIVUDINE+ZINDOVUDINE [Suspect]
     Active Substance: LAMIVUDINE\ZIDOVUDINE
     Dosage: 2 DOSAGE FORMS DAILY;
     Route: 048
     Dates: start: 20120209
  3. ALUVIA LPV/R [Suspect]
     Active Substance: LOPINAVIR\RITONAVIR

REACTIONS (3)
  - Stillbirth [Unknown]
  - Maternal exposure during pregnancy [None]
  - Exposure during pregnancy [Unknown]

NARRATIVE: CASE EVENT DATE: 20120425
